FAERS Safety Report 7176696-0 (Version None)
Quarter: 2010Q4

REPORT INFORMATION
  Report Type: 
  Country: None (occurrence: None)
  Receive Date: 20101216
  Receipt Date: 20101216
  Transmission Date: 20110411
  Serious: Yes (Disabling)
  Sender: FDA-Public Use
  Company Number: None

PATIENT
  Sex: Female
  Weight: 64.8644 kg

DRUGS (1)
  1. PROPOXYPHENE HCL AND ACETAMINOPHEN [Suspect]
     Indication: MYALGIA
     Dosage: 1 TABLET TWICE DAILY PO
     Route: 048
     Dates: start: 20100825, end: 20101015

REACTIONS (1)
  - DIZZINESS [None]
